FAERS Safety Report 6525199-2 (Version None)
Quarter: 2009Q4

REPORT INFORMATION
  Report Type: 
  Country: None (occurrence: None)
  Receive Date: 20091224
  Receipt Date: 20091211
  Transmission Date: 20100525
  Serious: Yes (Death)
  Sender: FDA-Public Use
  Company Number: AU-WYE-G02474308

PATIENT
  Age: 29 Year
  Sex: Female

DRUGS (8)
  1. EFFEXOR [Suspect]
     Indication: ANXIETY DISORDER
     Dosage: 75 MG 1X PER 1 DAY
     Dates: start: 20040801, end: 20060101
  2. EFFEXOR [Suspect]
     Indication: DEPRESSION
     Dosage: 75 MG 1X PER 1 DAY
     Dates: start: 20040801, end: 20060101
  3. EFFEXOR [Suspect]
     Dosage: 75MG
     Dates: start: 20060401
  4. EFFEXOR [Suspect]
     Dosage: 75 MG 1X PER 1 DAY
     Dates: start: 20091017
  5. EFFEXOR [Suspect]
     Dosage: 150 MG 1X PER 1 DAY
     Dates: start: 20070701, end: 20071016
  6. EFFEXOR [Concomitant]
     Dosage: 112.5MG DAILY
     Dates: start: 20061101
  7. LEXAPRO [Concomitant]
  8. ERYACNE (ERYTHROMYCIN) [Concomitant]

REACTIONS (21)
  - AGITATION [None]
  - ANXIETY [None]
  - COGNITIVE DISORDER [None]
  - COMPLETED SUICIDE [None]
  - CONDITION AGGRAVATED [None]
  - DEPRESSION [None]
  - DISTURBANCE IN ATTENTION [None]
  - DRUG EFFECT DECREASED [None]
  - DRUG INEFFECTIVE [None]
  - DRUG WITHDRAWAL SYNDROME [None]
  - FEELING ABNORMAL [None]
  - GENERAL PHYSICAL HEALTH DETERIORATION [None]
  - INSOMNIA [None]
  - INTENTIONAL DRUG MISUSE [None]
  - MALAISE [None]
  - MEMORY IMPAIRMENT [None]
  - MOOD ALTERED [None]
  - NONSPECIFIC REACTION [None]
  - SEXUAL DYSFUNCTION [None]
  - SUICIDAL IDEATION [None]
  - THINKING ABNORMAL [None]
